FAERS Safety Report 9373656 (Version 1)
Quarter: 2013Q2

REPORT INFORMATION
  Report Type: Spontaneous
  Country: FR (occurrence: FR)
  Receive Date: 20130627
  Receipt Date: 20130627
  Transmission Date: 20140414
  Serious: Yes (Hospitalization, Disabling, Congenital Anomaly, Other)
  Sender: FDA-Public Use
  Company Number: FR-PW/020607/308

PATIENT
  Age: 0 None
  Sex: Male
  Weight: 2090 kg

DRUGS (2)
  1. SUBUTEX [Suspect]
     Indication: DRUG ABUSE
     Dosage: MOTHER TOOK 3 MG DAILY
     Route: 064
     Dates: start: 2000, end: 20000919
  2. DEROXAT [Suspect]
     Indication: PRODUCT USED FOR UNKNOWN INDICATION
     Dosage: UNKNOWN DOSING DETAILS
     Route: 064
     Dates: start: 2000, end: 20000301

REACTIONS (9)
  - Foetal exposure during pregnancy [Recovered/Resolved]
  - Premature baby [Recovered/Resolved]
  - Multiple congenital abnormalities [Not Recovered/Not Resolved]
  - Convulsion neonatal [Unknown]
  - Jaundice neonatal [Unknown]
  - Neonatal hypotension [Unknown]
  - Neonatal respiratory distress syndrome [Unknown]
  - Drug withdrawal syndrome neonatal [Unknown]
  - Bradycardia neonatal [Unknown]
